FAERS Safety Report 10415236 (Version 1)
Quarter: 2014Q3

REPORT INFORMATION
  Report Type: Spontaneous
  Country: US (occurrence: None)
  Receive Date: 20140827
  Receipt Date: 20140827
  Transmission Date: 20150326
  Serious: Yes (Hospitalization)
  Sender: FDA-Public Use
  Company Number: None

PATIENT
  Age: 67 Year
  Sex: Male
  Weight: 70 kg

DRUGS (1)
  1. ERBITUX [Suspect]
     Active Substance: CETUXIMAB

REACTIONS (5)
  - Confusional state [None]
  - Dehydration [None]
  - Blood sodium abnormal [None]
  - Mucosal inflammation [None]
  - Laboratory test abnormal [None]

NARRATIVE: CASE EVENT DATE: 20130408
